FAERS Safety Report 24605119 (Version 1)
Quarter: 2024Q4

REPORT INFORMATION
  Report Type: Spontaneous
  Country: US (occurrence: US)
  Receive Date: 20241111
  Receipt Date: 20241111
  Transmission Date: 20250115
  Serious: No
  Sender: PARATEK PHARMACEUTICALS
  Company Number: US-PARATEK PHARMACEUTICALS, INC.-2024PTK00169

PATIENT
  Age: 76 Year
  Sex: Female

DRUGS (4)
  1. NUZYRA [Suspect]
     Active Substance: OMADACYCLINE
     Indication: Pneumonia bacterial
     Dosage: 300 MG, 1X/DAY
     Route: 048
     Dates: start: 20231125
  2. NUZYRA [Suspect]
     Active Substance: OMADACYCLINE
     Indication: Atypical mycobacterial infection
  3. ARIKAYCE [Suspect]
     Active Substance: AMIKACIN
     Dosage: 622 MG
  4. AMIKACIN [Suspect]
     Active Substance: AMIKACIN

REACTIONS (4)
  - Nausea [Not Recovered/Not Resolved]
  - Vomiting [Recovered/Resolved]
  - Labelled drug-food interaction medication error [Recovered/Resolved]
  - Off label use [Not Recovered/Not Resolved]

NARRATIVE: CASE EVENT DATE: 20231125
